FAERS Safety Report 5269942-1 (Version None)
Quarter: 2007Q1

REPORT INFORMATION
  Report Type: 
  Country: None (occurrence: None)
  Receive Date: 20070320
  Receipt Date: 20070315
  Transmission Date: 20070707
  Serious: Yes (Death)
  Sender: FDA-Public Use
  Company Number: JP-AVENTIS-200710655JP

PATIENT
  Age: 79 Year
  Sex: Male

DRUGS (3)
  1. TAXOTERE [Suspect]
     Route: 041
     Dates: start: 20061201, end: 20070105
  2. RHYTHMY [Concomitant]
     Indication: INSOMNIA
     Route: 048
     Dates: start: 20061208, end: 20061208
  3. ENDOXAN [Concomitant]
     Dates: start: 20070202, end: 20070202

REACTIONS (1)
  - INTERSTITIAL LUNG DISEASE [None]
